FAERS Safety Report 8403056 (Version 4)
Quarter: 2013Q2

REPORT INFORMATION
  Report Type: Spontaneous
  Country: JP (occurrence: None)
  Receive Date: 20120201
  Receipt Date: 20130430
  Transmission Date: 20140414
  Serious: Yes (Hospitalization, Other)
  Sender: FDA-Public Use
  Company Number: ADR-2012-00197

PATIENT
  Age: 11 Year
  Sex: Male

DRUGS (2)
  1. BACLOFEN [Suspect]
     Indication: HEAD INJURY
     Dosage: 207 MCG/DAY
     Dates: start: 20110930
  2. GENTACIN [Concomitant]

REACTIONS (5)
  - DEVICE RELATED INFECTION [None]
  - POST PROCEDURAL FISTULA [None]
  - IMPLANT SITE INFECTION [None]
  - PURULENT DISCHARGE [None]
  - IMPLANT SITE SWELLING [None]
